FAERS Safety Report 18966148 (Version 2)
Quarter: 2021Q2

REPORT INFORMATION
  Report Type: Spontaneous
  Country: US (occurrence: US)
  Receive Date: 20210303
  Receipt Date: 20210503
  Transmission Date: 20210717
  Serious: Yes (Death, Hospitalization, Other)
  Sender: FDA-Public Use
  Company Number: US-TEVA-2021-US-1886428

PATIENT
  Age: 73 Year
  Sex: Female
  Weight: 77 kg

DRUGS (36)
  1. GABAPENTIN. [Concomitant]
     Active Substance: GABAPENTIN
     Route: 048
  2. SPIRONOLACTONE. [Concomitant]
     Active Substance: SPIRONOLACTONE
     Route: 048
  3. CLOBETASOL [Concomitant]
     Active Substance: CLOBETASOL
     Route: 061
  4. MELOXICAM. [Concomitant]
     Active Substance: MELOXICAM
     Route: 048
  5. PANTOPRAZOLE DELAYED RELEASE [Concomitant]
     Dosage: 40 MILLIGRAM DAILY;
     Route: 048
  6. INFLUENZA [Concomitant]
     Active Substance: INFLUENZA VIRUS VACCINE
     Route: 065
     Dates: start: 20121016
  7. PNEUMOCOCCAL CONJUGATE PCV 13 [Concomitant]
     Route: 030
     Dates: start: 20150519
  8. OMEPRAZOLE. [Concomitant]
     Active Substance: OMEPRAZOLE
     Dosage: 20 MILLIGRAM DAILY;
     Route: 048
  9. VALSARTAN ACTAVIS [Suspect]
     Active Substance: VALSARTAN
     Indication: HYPERTENSION
     Route: 065
     Dates: start: 20160330, end: 201609
  10. AGGRENOX [Concomitant]
     Active Substance: ASPIRIN\DIPYRIDAMOLE
     Dosage: ASPIRIN 200 MG,  DIPYRIDAMOLE 25 MG
     Route: 048
  11. TIZANIDINE. [Concomitant]
     Active Substance: TIZANIDINE
     Route: 048
  12. PROTONIX [Concomitant]
     Active Substance: PANTOPRAZOLE SODIUM
     Indication: GASTROOESOPHAGEAL REFLUX DISEASE
     Dosage: 40 MILLIGRAM DAILY;
     Route: 048
  13. LYSINE [Concomitant]
     Active Substance: LYSINE
     Route: 065
  14. SULFAMETHOXAZOLE/TRIMETHOPRIM [Concomitant]
     Active Substance: SULFAMETHOXAZOLE\TRIMETHOPRIM
     Dosage: SULFAMETHOXAZOLE 800 MG?TRIMETHOPRIM 160 MG
     Route: 065
  15. INFLUENZA [Concomitant]
     Active Substance: INFLUENZA VIRUS VACCINE
     Route: 030
     Dates: start: 20131013
  16. BISACODYL. [Concomitant]
     Active Substance: BISACODYL
     Route: 065
  17. METAXALONE. [Concomitant]
     Active Substance: METAXALONE
     Dosage: 800 MILLIGRAM DAILY;
     Route: 048
  18. TIMOLOL MALEATE. [Concomitant]
     Active Substance: TIMOLOL MALEATE
     Route: 065
  19. HUMALOG [Concomitant]
     Active Substance: INSULIN LISPRO
     Dosage: 100 UNITS/ML
     Route: 065
  20. METFORMIN [Concomitant]
     Active Substance: METFORMIN HYDROCHLORIDE
     Indication: TYPE 2 DIABETES MELLITUS
     Route: 048
  21. VITAMIN B12 [Concomitant]
     Active Substance: CYANOCOBALAMIN
     Route: 048
  22. MAGNESIUM [Concomitant]
     Active Substance: MAGNESIUM
     Route: 048
  23. MILK OF MAGNESIA [Concomitant]
     Active Substance: MAGNESIUM HYDROXIDE
     Indication: CONSTIPATION
     Route: 065
  24. DIOVAN [Suspect]
     Active Substance: VALSARTAN
     Indication: HYPERTENSION
     Route: 065
     Dates: start: 20130807, end: 201602
  25. VALSARTAN ACETRIS HEALTH [Suspect]
     Active Substance: VALSARTAN
     Indication: HYPERTENSION
     Route: 065
     Dates: start: 201702, end: 201808
  26. MALETONIN [Concomitant]
     Route: 048
  27. METAXALONE. [Concomitant]
     Active Substance: METAXALONE
     Dosage: 1.5 TABLET EVERY DAY
     Route: 048
  28. RANITIDINE HCL [Concomitant]
     Active Substance: RANITIDINE HYDROCHLORIDE
     Dosage: 75 MILLIGRAM DAILY;
     Route: 048
  29. TRAMADOL. [Concomitant]
     Active Substance: TRAMADOL
     Dosage: AT BED TIME
     Route: 048
  30. CLOBETASOL [Concomitant]
     Active Substance: CLOBETASOL
     Route: 061
  31. INFLUENZA [Concomitant]
     Active Substance: INFLUENZA VIRUS VACCINE
     Route: 030
     Dates: start: 20141027
  32. ROPINIROLE. [Concomitant]
     Active Substance: ROPINIROLE
     Route: 048
  33. VITAMIN E [Concomitant]
     Active Substance: .ALPHA.-TOCOPHEROL
     Route: 065
  34. INFLUENZA [Concomitant]
     Active Substance: INFLUENZA VIRUS VACCINE
     Route: 030
     Dates: start: 20161201
  35. INFLUENZA [Concomitant]
     Active Substance: INFLUENZA VIRUS VACCINE
     Route: 030
     Dates: start: 20171031
  36. AMOXICILLIN?CLAVULANATE [Concomitant]
     Active Substance: AMOXICILLIN\CLAVULANIC ACID
     Route: 048

REACTIONS (6)
  - Obstruction gastric [Fatal]
  - Skin cancer [Unknown]
  - Metastases to peritoneum [Fatal]
  - Pancreatic carcinoma [Fatal]
  - Small intestine carcinoma [Unknown]
  - Jaundice cholestatic [Unknown]

NARRATIVE: CASE EVENT DATE: 20190210
